FAERS Safety Report 6305254-2 (Version None)
Quarter: 2009Q3

REPORT INFORMATION
  Report Type: 
  Country: None (occurrence: None)
  Receive Date: 20090811
  Receipt Date: 20090731
  Transmission Date: 20100115
  Serious: Yes (Other)
  Sender: FDA-Public Use
  Company Number: PHHY2009DE32527

PATIENT
  Sex: Female

DRUGS (1)
  1. ESTRAGEST TTS [Suspect]
     Indication: MIGRAINE
     Dosage: UNK
     Route: 062
     Dates: start: 20090725

REACTIONS (4)
  - DEPRESSION [None]
  - PAIN [None]
  - PAIN IN EXTREMITY [None]
  - TUNNEL VISION [None]
